FAERS Safety Report 12808277 (Version 2)
Quarter: 2016Q4

REPORT INFORMATION
  Report Type: Spontaneous
  Country: IT (occurrence: IT)
  Receive Date: 20161004
  Receipt Date: 20161102
  Transmission Date: 20170207
  Serious: Yes (Other)
  Sender: FDA-Public Use
  Company Number: IT-PFIZER INC-2016454364

PATIENT
  Age: 67 Year
  Sex: Female

DRUGS (1)
  1. METHYLPREDNISOLONE. [Suspect]
     Active Substance: METHYLPREDNISOLONE
     Indication: BASEDOW^S DISEASE
     Dosage: CUMULATIVE DOSE OF 2.5 GR

REACTIONS (1)
  - Pyelonephritis [Unknown]
